FAERS Safety Report 9145845 (Version 1)
Quarter: 2013Q1

REPORT INFORMATION
  Report Type: Spontaneous
  Country: CA (occurrence: CA)
  Receive Date: 20130307
  Receipt Date: 20130307
  Transmission Date: 20140127
  Serious: Yes (Other)
  Sender: FDA-Public Use
  Company Number: CA-TEVA-390305USA

PATIENT
  Sex: 0

DRUGS (1)
  1. PLAN B [Suspect]
     Route: 065

REACTIONS (2)
  - Breast mass [Unknown]
  - Fungal infection [Unknown]
